FAERS Safety Report 20823094 (Version 2)
Quarter: 2022Q4

REPORT INFORMATION
  Report Type: Report from Study
  Country: FR (occurrence: FR)
  Receive Date: 20220512
  Receipt Date: 20221021
  Transmission Date: 20230113
  Serious: Yes (Hospitalization)
  Sender: FDA-Public Use
  Company Number: FR-ABBVIE-22K-056-4391272-00

PATIENT
  Age: 81 Year
  Sex: Female
  Weight: 61 kg

DRUGS (8)
  1. UPADACITINIB [Suspect]
     Active Substance: UPADACITINIB
     Indication: Rheumatoid arthritis
     Dosage: THERAPY END DATE WAS 2022.
     Route: 048
     Dates: start: 202204
  2. UPADACITINIB [Suspect]
     Active Substance: UPADACITINIB
     Indication: Rheumatoid arthritis
     Dosage: 15 MILLIGRAM
     Route: 048
     Dates: start: 2022
  3. CHOLECALCIFEROL [Concomitant]
     Active Substance: CHOLECALCIFEROL
     Indication: Prophylaxis
     Dosage: ZYMAD D
     Route: 048
     Dates: start: 20211012
  4. FOLIC ACID [Concomitant]
     Active Substance: FOLIC ACID
     Indication: Prophylaxis
     Route: 048
     Dates: start: 2005
  5. METHOTREXATE [Concomitant]
     Active Substance: METHOTREXATE
     Indication: Rheumatoid arthritis
     Route: 048
     Dates: start: 2005
  6. BCG VACCINE [Concomitant]
     Active Substance: BCG VACCINE
     Indication: Product used for unknown indication
     Route: 065
  7. PREDNISONE [Concomitant]
     Active Substance: PREDNISONE
     Indication: Pulmonary fibrosis
     Dosage: 5 MILLIGRAM
     Route: 048
     Dates: start: 20220524
  8. POTASSIUM CHLORIDE [Concomitant]
     Active Substance: POTASSIUM CHLORIDE
     Indication: Prophylaxis
     Dosage: 600 MILLIGRAM
     Route: 048
     Dates: start: 20220524

REACTIONS (3)
  - Pulmonary fibrosis [Recovered/Resolved]
  - Bronchitis [Recovered/Resolved]
  - Pneumonia [Recovered/Resolved]

NARRATIVE: CASE EVENT DATE: 20220715
